FAERS Safety Report 17068164 (Version 9)
Quarter: 2021Q3

REPORT INFORMATION
  Report Type: Report from Study
  Country: US (occurrence: US)
  Receive Date: 20191122
  Receipt Date: 20210902
  Transmission Date: 20211014
  Serious: Yes (Hospitalization, Other)
  Sender: FDA-Public Use
  Company Number: NVSC2019US043709

PATIENT
  Age: 35 Year
  Sex: Female
  Weight: 145.13 kg

DRUGS (7)
  1. OPSUMIT [Concomitant]
     Active Substance: MACITENTAN
     Indication: PRODUCT USED FOR UNKNOWN INDICATION
     Dosage: UNK
     Route: 065
  2. TREPROSTINIL. [Suspect]
     Active Substance: TREPROSTINIL
     Dosage: 58 NG/KG.MIN, CONTINUOUS
     Route: 065
  3. TREPROSTINIL. [Suspect]
     Active Substance: TREPROSTINIL
     Dosage: 60 NG/KG.MIN, CONTINUOUS
     Route: 042
  4. TREPROSTINIL. [Suspect]
     Active Substance: TREPROSTINIL
     Dosage: 60 NG/KG.MIN, CONTINUOUS
     Route: 042
     Dates: start: 20191108
  5. TREPROSTINIL. [Suspect]
     Active Substance: TREPROSTINIL
     Indication: PULMONARY ARTERIAL HYPERTENSION
     Dosage: 29 (UNITS NG/KG/MIN), CONTINUOUS
     Route: 042
     Dates: start: 20190811
  6. TREPROSTINIL. [Suspect]
     Active Substance: TREPROSTINIL
     Dosage: 58 NG/KG.MIN, CONTINUOUS
     Route: 042
  7. SILDENAFIL CITRATE. [Concomitant]
     Active Substance: SILDENAFIL CITRATE
     Indication: PRODUCT USED FOR UNKNOWN INDICATION
     Dosage: UNK UNK, UNKNOWN
     Route: 065

REACTIONS (14)
  - Nasopharyngitis [Unknown]
  - Cough [Unknown]
  - Sepsis [Unknown]
  - Feeling abnormal [Unknown]
  - Fatigue [Not Recovered/Not Resolved]
  - Headache [Not Recovered/Not Resolved]
  - Body temperature increased [Unknown]
  - Infusion site pain [Unknown]
  - Infusion site reaction [Unknown]
  - Device related infection [Unknown]
  - Chills [Unknown]
  - Secretion discharge [Unknown]
  - Septic shock [Unknown]
  - Dyspnoea [Unknown]

NARRATIVE: CASE EVENT DATE: 20200910
